FAERS Safety Report 19849818 (Version 2)
Quarter: 2021Q3

REPORT INFORMATION
  Report Type: Spontaneous
  Country: TR (occurrence: TR)
  Receive Date: 20210917
  Receipt Date: 20210930
  Transmission Date: 20211014
  Serious: No
  Sender: FDA-Public Use
  Company Number: TR-ABBVIE-21K-161-4084671-00

PATIENT
  Age: 35 Year
  Sex: Female

DRUGS (5)
  1. KALETRA [Suspect]
     Active Substance: LOPINAVIR\RITONAVIR
     Indication: COVID-19
     Dosage: 200MG/50MG
     Route: 048
     Dates: start: 202004
  2. MEROPENEM. [Concomitant]
     Active Substance: MEROPENEM
     Indication: ANTIBIOTIC PROPHYLAXIS
     Route: 042
     Dates: start: 202004
  3. AZITRO [Concomitant]
     Active Substance: AZITHROMYCIN
     Indication: COVID-19
     Route: 048
  4. PLAQUENIL [Concomitant]
     Active Substance: HYDROXYCHLOROQUINE SULFATE
     Indication: COVID-19
     Route: 048
     Dates: start: 202004
  5. ENFLUVIR [Concomitant]
     Active Substance: OSELTAMIVIR PHOSPHATE
     Indication: COVID-19
     Route: 048
     Dates: start: 202104

REACTIONS (3)
  - Maternal exposure during pregnancy [Unknown]
  - Live birth [Unknown]
  - Off label use [Unknown]

NARRATIVE: CASE EVENT DATE: 202004
